FAERS Safety Report 11107780 (Version 1)
Quarter: 2015Q2

REPORT INFORMATION
  Report Type: Spontaneous
  Country: US (occurrence: US)
  Receive Date: 20150512
  Receipt Date: 20150512
  Transmission Date: 20150821
  Serious: No
  Sender: FDA-Public Use
  Company Number: US-009507513-1504USA021650

PATIENT
  Age: 52 Year
  Sex: Female

DRUGS (1)
  1. TEMODAR [Suspect]
     Active Substance: TEMOZOLOMIDE
     Indication: PANCREATIC CARCINOMA
     Dosage: 300 MG ONCE DAILY FOR 5 DAYS OUT OF EVERY 28 DAY CYCLE
     Route: 048
     Dates: start: 20150422

REACTIONS (4)
  - Vomiting [Unknown]
  - Off label use [Unknown]
  - Nausea [Unknown]
  - Overdose [Unknown]

NARRATIVE: CASE EVENT DATE: 20150422
